FAERS Safety Report 25575361 (Version 3)
Quarter: 2025Q4

REPORT INFORMATION
  Report Type: Report from Study
  Country: US (occurrence: US)
  Receive Date: 20250718
  Receipt Date: 20251028
  Transmission Date: 20260117
  Serious: Yes (Hospitalization)
  Sender: RECORDATI
  Company Number: US-RECORDATI-2025000346

PATIENT
  Age: 55 Year
  Sex: Female
  Weight: 67.12 kg

DRUGS (34)
  1. ISTURISA [Suspect]
     Active Substance: OSILODROSTAT PHOSPHATE
     Indication: Pituitary-dependent Cushing^s syndrome
     Dosage: 2 MG, BID (1 MG TABLET)
     Route: 048
     Dates: end: 20230322
  2. ISTURISA [Suspect]
     Active Substance: OSILODROSTAT PHOSPHATE
     Indication: Pituitary tumour benign
     Dosage: 2 MG, BID (1 MG TABLET)
     Route: 048
     Dates: start: 2023, end: 20230613
  3. ISTURISA [Suspect]
     Active Substance: OSILODROSTAT PHOSPHATE
     Dosage: 4 MG, BID (1 MG TABLET)
     Route: 048
     Dates: start: 202306, end: 20230628
  4. ISTURISA [Suspect]
     Active Substance: OSILODROSTAT PHOSPHATE
     Dosage: 5 MG, BID (5 MG TABLET)
     Route: 048
     Dates: start: 2023, end: 20230623
  5. ISTURISA [Suspect]
     Active Substance: OSILODROSTAT PHOSPHATE
     Dosage: 5 MG, BID (5 MG TABLET)
     Route: 048
     Dates: start: 2023, end: 20230808
  6. ISTURISA [Suspect]
     Active Substance: OSILODROSTAT PHOSPHATE
     Dosage: 5 MG, BID (5 MG TABLET)
     Route: 048
     Dates: start: 202308, end: 20230809
  7. ISTURISA [Suspect]
     Active Substance: OSILODROSTAT PHOSPHATE
     Dosage: 3 MG, BID (1 MG TABLET)
     Route: 048
     Dates: start: 2023, end: 20230809
  8. ISTURISA [Suspect]
     Active Substance: OSILODROSTAT PHOSPHATE
     Dosage: 3 MG, BID (1 MG TABLET)
     Route: 048
     Dates: end: 20240124
  9. ISTURISA [Suspect]
     Active Substance: OSILODROSTAT PHOSPHATE
     Dosage: 5 MG, BID (5 MG TABLET)
     Route: 048
     Dates: end: 20240124
  10. ISTURISA [Suspect]
     Active Substance: OSILODROSTAT PHOSPHATE
     Dosage: 15 MG, DAILY (5 MG TABLET)
     Route: 048
     Dates: end: 20241218
  11. ISTURISA [Suspect]
     Active Substance: OSILODROSTAT PHOSPHATE
     Dosage: 15 MG DAILY (5 MG TABLET)
     Route: 048
     Dates: end: 20250423
  12. ISTURISA [Suspect]
     Active Substance: OSILODROSTAT PHOSPHATE
     Dosage: 10 MG, BID (5 MG TABLET)
     Route: 048
     Dates: start: 2025, end: 20250617
  13. ISTURISA [Suspect]
     Active Substance: OSILODROSTAT PHOSPHATE
     Dosage: 15 MG DAILY (5MG QAM AND 10MG QHS)/ (BID), (5 MG TABLET)
     Route: 048
     Dates: start: 2025, end: 20250711
  14. ISTURISA [Suspect]
     Active Substance: OSILODROSTAT PHOSPHATE
     Dosage: 20 MG, BID (5 MG TABLET)
     Route: 048
     Dates: start: 20250711, end: 20250808
  15. ISTURISA [Suspect]
     Active Substance: OSILODROSTAT PHOSPHATE
     Dosage: 5 MG, BID (5 MG TABLET)
     Route: 048
     Dates: start: 2025, end: 2025
  16. ISTURISA [Suspect]
     Active Substance: OSILODROSTAT PHOSPHATE
     Dosage: 25 MG, BID
     Route: 048
     Dates: start: 2025
  17. SIGNIFOR LAR [Suspect]
     Active Substance: PASIREOTIDE PAMOATE
     Indication: Product used for unknown indication
     Dosage: 1 DOSAGE FORM, EVERY 4 WEEKS (10 MG INJECTION KIT)
     Route: 030
     Dates: end: 20250403
  18. SIGNIFOR LAR [Suspect]
     Active Substance: PASIREOTIDE PAMOATE
     Dosage: 1 DOSAGE FORM, QM (10 MG INJECTION KIT)
     Route: 030
     Dates: start: 202504, end: 20250423
  19. SIGNIFOR LAR [Suspect]
     Active Substance: PASIREOTIDE PAMOATE
     Dosage: 1 DOSAGE FORM, EVERY 4 WEEKS (30 MG INJECTION KIT)
     Route: 030
     Dates: start: 2025, end: 20250527
  20. SIGNIFOR LAR [Suspect]
     Active Substance: PASIREOTIDE PAMOATE
     Dosage: 1 DOSAGE FORM, QM (30 MG INJECTION KIT)
     Route: 030
     Dates: start: 20250527, end: 20251001
  21. SIGNIFOR LAR [Suspect]
     Active Substance: PASIREOTIDE PAMOATE
     Dosage: 1 DOSAGE FORM, QM
     Route: 030
     Dates: start: 20251001, end: 20251006
  22. SIGNIFOR LAR [Suspect]
     Active Substance: PASIREOTIDE PAMOATE
     Dosage: 1 DOSAGE FORM, EVERY 4 WEEKS (30 MG INJECTION KIT)
     Route: 030
     Dates: start: 202510
  23. ATORVASTATIN CALCIUM [Concomitant]
     Active Substance: ATORVASTATIN CALCIUM
     Indication: Product used for unknown indication
     Dosage: 20 MG, QD (HS) AT BEDTIME (TABLET 20)
     Route: 048
     Dates: start: 20220502
  24. BIOTIN [Concomitant]
     Active Substance: BIOTIN
     Indication: Product used for unknown indication
     Dosage: 5000 MICROGRAM, QD
     Route: 048
     Dates: start: 20230503
  25. KLONOPIN [Concomitant]
     Active Substance: CLONAZEPAM
     Indication: Product used for unknown indication
     Dosage: 0.5 MG (TABLET), BID
     Route: 048
     Dates: start: 20220502
  26. METFORMIN HYDROCHLORIDE [Concomitant]
     Active Substance: METFORMIN HYDROCHLORIDE
     Indication: Product used for unknown indication
     Dosage: 750 MG, BID (500 MG TABLET)
     Route: 048
     Dates: start: 20231120
  27. METOPROLOL TARTRATE [Concomitant]
     Active Substance: METOPROLOL TARTRATE
     Indication: Product used for unknown indication
     Dosage: 25 MG, BID (TABLET)
     Route: 048
     Dates: start: 20220502
  28. MOUNJARO [Concomitant]
     Active Substance: TIRZEPATIDE
     Indication: Product used for unknown indication
     Dosage: AUTO SOLUTION 2.5 MG/0.5 ML, WEEKLY
     Route: 058
     Dates: start: 20241104
  29. SYNTHROID [Concomitant]
     Active Substance: LEVOTHYROXINE SODIUM
     Indication: Product used for unknown indication
     Dosage: 25 MICROGRAM, QD
     Route: 048
     Dates: start: 20220502
  30. TRAZODONE HCL [Concomitant]
     Active Substance: TRAZODONE HYDROCHLORIDE
     Indication: Product used for unknown indication
     Dosage: 100 MG, QD (HS) (BEDTIME) (TABLET)
     Route: 048
     Dates: start: 20220502
  31. PERCOCET [Concomitant]
     Active Substance: ACETAMINOPHEN\OXYCODONE HYDROCHLORIDE
     Indication: Product used for unknown indication
     Dosage: 5-325 MG TABLET, PRN Q6H
     Route: 048
     Dates: start: 20250401
  32. SPIRONOLACTONE [Concomitant]
     Active Substance: SPIRONOLACTONE
     Indication: Product used for unknown indication
     Dosage: 50 MG TABLET, QD (QAM)
     Route: 048
     Dates: start: 20250422
  33. OZEMPIC [Concomitant]
     Active Substance: SEMAGLUTIDE
     Indication: Product used for unknown indication
     Dosage: 2 MG/1.5ML (0.25 OR 0.5 MG/DOSE), WEEKLY (SUBCUTANEOUS SOLUTION)
     Route: 058
  34. VIMPAT [Concomitant]
     Active Substance: LACOSAMIDE
     Indication: Product used for unknown indication
     Dosage: 100 MG, BID (TABLET)
     Route: 048
     Dates: start: 20220502, end: 20230531

REACTIONS (8)
  - Ear pain [Unknown]
  - Hospitalisation [Not Recovered/Not Resolved]
  - Ear infection [Recovered/Resolved]
  - Ear infection [Recovered/Resolved]
  - Ear infection [Unknown]
  - Mass [Unknown]
  - Condition aggravated [Unknown]
  - Rhinitis [Recovered/Resolved]

NARRATIVE: CASE EVENT DATE: 20250101
